FAERS Safety Report 17572555 (Version 3)
Quarter: 2020Q4

REPORT INFORMATION
  Report Type: Report from Study
  Country: US (occurrence: US)
  Receive Date: 20200323
  Receipt Date: 20201130
  Transmission Date: 20210113
  Serious: Yes (Hospitalization, Other)
  Sender: FDA-Public Use
  Company Number: US-SHIRE-US202010741

PATIENT
  Sex: Female

DRUGS (8)
  1. CUVITRU [Suspect]
     Active Substance: HUMAN IMMUNOGLOBULIN G
     Indication: HYPOGAMMAGLOBULINAEMIA
     Route: 065
  2. OCTAGAM IMMUNE GLOBULIN (HUMAN) [Concomitant]
     Active Substance: HUMAN IMMUNOGLOBULIN G
     Indication: PRODUCT USED FOR UNKNOWN INDICATION
  3. HUMAN IMMUNOGLOBULIN; HYALURONIDASE [Suspect]
     Active Substance: HUMAN IMMUNOGLOBULIN G\HYALURONIDASE RECOMBINANT HUMAN
     Indication: IMMUNODEFICIENCY COMMON VARIABLE
     Dosage: 7.5 GRAM
     Route: 058
     Dates: start: 20200228
  4. HUMAN IMMUNOGLOBULIN; HYALURONIDASE [Suspect]
     Active Substance: HUMAN IMMUNOGLOBULIN G\HYALURONIDASE RECOMBINANT HUMAN
     Dosage: UNK
     Route: 058
  5. HUMAN IMMUNOGLOBULIN; HYALURONIDASE [Suspect]
     Active Substance: HUMAN IMMUNOGLOBULIN G\HYALURONIDASE RECOMBINANT HUMAN
     Dosage: 15 GRAM
     Route: 058
     Dates: start: 20200306
  6. HUMAN IMMUNOGLOBULIN; HYALURONIDASE [Suspect]
     Active Substance: HUMAN IMMUNOGLOBULIN G\HYALURONIDASE RECOMBINANT HUMAN
     Dosage: UNK
     Route: 058
  7. GAMMAGARD [Concomitant]
     Active Substance: HUMAN IMMUNOGLOBULIN G
     Indication: PRODUCT USED FOR UNKNOWN INDICATION
  8. GAMUNEX-C [Concomitant]
     Active Substance: HUMAN IMMUNOGLOBULIN G
     Indication: PRODUCT USED FOR UNKNOWN INDICATION

REACTIONS (47)
  - Retinal haemorrhage [Unknown]
  - Blood albumin decreased [Unknown]
  - Weight increased [Unknown]
  - Skin disorder [Unknown]
  - Limb injury [Unknown]
  - Intervertebral disc protrusion [Unknown]
  - Protein total decreased [Unknown]
  - Injection site swelling [Recovering/Resolving]
  - Injection site pain [Unknown]
  - Abdominal pain upper [Not Recovered/Not Resolved]
  - Pyrexia [Unknown]
  - Foot fracture [Unknown]
  - Musculoskeletal discomfort [Unknown]
  - Drug hypersensitivity [Unknown]
  - Laboratory test abnormal [Unknown]
  - Thrombosis [Unknown]
  - Bronchitis [Unknown]
  - Injection site extravasation [Unknown]
  - Gastrooesophageal reflux disease [Unknown]
  - Injection site erythema [Recovering/Resolving]
  - Insomnia [Unknown]
  - Anaemia [Unknown]
  - Infusion site nodule [Unknown]
  - Asthma [Unknown]
  - Dyspnoea [Unknown]
  - Migraine [Unknown]
  - Feeling cold [Unknown]
  - Intestinal obstruction [Unknown]
  - Retinal injury [Recovered/Resolved]
  - Swelling [Unknown]
  - Pharyngeal swelling [Unknown]
  - Tachycardia [Unknown]
  - Sinusitis [Unknown]
  - Rash [Unknown]
  - Asthenia [Unknown]
  - Product leakage [Unknown]
  - Cerebrovascular accident [Unknown]
  - Vein collapse [Unknown]
  - Abdominal discomfort [Unknown]
  - Abdominal distension [Not Recovered/Not Resolved]
  - Back injury [Unknown]
  - Needle issue [Unknown]
  - Vomiting [Unknown]
  - Weight decreased [Unknown]
  - Fatigue [Unknown]
  - Fall [Unknown]
  - Incorrect drug administration rate [Unknown]
